FAERS Safety Report 5257304-2 (Version None)
Quarter: 2007Q1

REPORT INFORMATION
  Report Type: 
  Country: None (occurrence: None)
  Receive Date: 20061220
  Receipt Date: 20061009
  Transmission Date: 20070707
  Serious: No
  Sender: FDA-Public Use
  Company Number: 2006RL000358

PATIENT
  Age: 75 Year
  Sex: Female

DRUGS (7)
  1. OMACOR [Suspect]
     Indication: BLOOD TRIGLYCERIDES INCREASED
     Dosage: SEE IMAGE
     Route: 048
     Dates: start: 20051019
  2. TENORMIN [Concomitant]
  3. MONOPRIL [Concomitant]
  4. HYDROCHLOROTHIAZIDE [Concomitant]
  5. LEVOXYL [Concomitant]
  6. METAMUCIL [Concomitant]
  7. NITROGLYCERIN [Concomitant]

REACTIONS (3)
  - ABDOMINAL TENDERNESS [None]
  - CONSTIPATION [None]
  - HYPERTENSION [None]
